FAERS Safety Report 24341294 (Version 1)
Quarter: 2024Q3

REPORT INFORMATION
  Report Type: Report from Study
  Country: BR (occurrence: BR)
  Receive Date: 20240920
  Receipt Date: 20240920
  Transmission Date: 20241017
  Serious: Yes (Death, Other)
  Sender: ABBVIE
  Company Number: BR-ABBVIE-5929854

PATIENT
  Age: 71 Year
  Sex: Female
  Weight: 43 kg

DRUGS (1)
  1. RINVOQ [Suspect]
     Active Substance: UPADACITINIB
     Indication: Rheumatoid arthritis
     Route: 048
     Dates: start: 20210811, end: 202210

REACTIONS (3)
  - Ischaemic stroke [Fatal]
  - Amnesia [Unknown]
  - Confusional state [Unknown]

NARRATIVE: CASE EVENT DATE: 20221003
